FAERS Safety Report 19667315 (Version 2)
Quarter: 2022Q2

REPORT INFORMATION
  Report Type: Other
  Country: GB (occurrence: GB)
  Receive Date: 20210806
  Receipt Date: 20220630
  Transmission Date: 20220721
  Serious: Yes (Other)
  Sender: FDA-Public Use
  Company Number: None

PATIENT
  Age: 41 Year
  Sex: Male
  Weight: 143 kg

DRUGS (6)
  1. SIMVASTATIN [Suspect]
     Active Substance: SIMVASTATIN
     Indication: Product used for unknown indication
     Dosage: UNK
     Route: 065
  2. ATORVASTATIN [Concomitant]
     Active Substance: ATORVASTATIN
     Indication: Ill-defined disorder
     Dosage: UNK UNK, QD  (TAKE ONE DAILY )
     Route: 065
     Dates: start: 20210721
  3. BISOPROLOL [Concomitant]
     Active Substance: BISOPROLOL
     Indication: Ill-defined disorder
     Dosage: UNK, QD (TAKE ONE DAILY )
     Route: 065
     Dates: start: 20210114
  4. DABIGATRAN ETEXILATE MESYLATE [Concomitant]
     Active Substance: DABIGATRAN ETEXILATE MESYLATE
     Indication: Ill-defined disorder
     Dosage: 1 DOSAGE FORM, BID (1 TO BE TAKEN TWICE DAILY )
     Route: 065
     Dates: start: 20201208
  5. DIGOXIN [Concomitant]
     Active Substance: DIGOXIN
     Indication: Ill-defined disorder
     Dosage: UNK, QD, TAKE ONE DAILY
     Route: 065
     Dates: start: 20210301, end: 20210721
  6. WARFARIN SODIUM [Concomitant]
     Active Substance: WARFARIN SODIUM
     Indication: Ill-defined disorder
     Dosage: UNK (USE AS DIRECTED )
     Route: 065
     Dates: start: 20210616

REACTIONS (2)
  - Fatigue [Recovered/Resolved]
  - Myalgia [Unknown]

NARRATIVE: CASE EVENT DATE: 20210721
